FAERS Safety Report 14301946 (Version 1)
Quarter: 2017Q4

REPORT INFORMATION
  Report Type: Spontaneous
  Country: US (occurrence: US)
  Receive Date: 20171219
  Receipt Date: 20171219
  Transmission Date: 20180321
  Serious: No
  Sender: FDA-Public Use
  Company Number: US-RECKITT BENCKISER HEALTHCARE INT LIMITED-RB-80300-2017

PATIENT
  Age: 92 Year
  Sex: Male

DRUGS (2)
  1. DELSYM [Suspect]
     Active Substance: DEXTROMETHORPHAN
     Dosage: TOOK FIRST DOSE AROUND 8 AM MORNING, NEXT DOSE AROUND 4PM AND THEN 9 PM
     Route: 065
     Dates: start: 20161213
  2. DELSYM [Suspect]
     Active Substance: DEXTROMETHORPHAN
     Indication: PRODUCT USED FOR UNKNOWN INDICATION
     Dosage: TOOK FIRST DOSE AROUND 8 AM MORNING, NEXT DOSE AROUND 4PM AND THEN 9 PM
     Route: 065
     Dates: start: 20161212

REACTIONS (3)
  - No adverse event [Unknown]
  - Inappropriate schedule of drug administration [Unknown]
  - Overdose [Unknown]

NARRATIVE: CASE EVENT DATE: 20161212
